FAERS Safety Report 23799742 (Version 1)
Quarter: 2024Q2

REPORT INFORMATION
  Report Type: Spontaneous
  Country: US (occurrence: None)
  Receive Date: 20240429
  Receipt Date: 20240429
  Transmission Date: 20240717
  Serious: No
  Sender: FDA-Public Use
  Company Number: None

PATIENT
  Age: 74 Year
  Sex: Female
  Weight: 56.25 kg

DRUGS (3)
  1. KEYTRUDA [Suspect]
     Active Substance: PEMBROLIZUMAB
     Indication: Lung neoplasm malignant
     Dates: end: 20240102
  2. UNSPECIFIED INGREDIENT [Concomitant]
     Active Substance: UNSPECIFIED INGREDIENT
  3. PREDNISONE [Concomitant]
     Active Substance: PREDNISONE

REACTIONS (9)
  - Eating disorder [None]
  - Pain [None]
  - Nausea [None]
  - Weight decreased [None]
  - Cachexia [None]
  - Fluid retention [None]
  - Peripheral swelling [None]
  - Discomfort [None]
  - Chylothorax [None]

NARRATIVE: CASE EVENT DATE: 20231228
